FAERS Safety Report 21106282 (Version 1)
Quarter: 2022Q3

REPORT INFORMATION
  Report Type: Spontaneous
  Country: US (occurrence: US)
  Receive Date: 20220720
  Receipt Date: 20220720
  Transmission Date: 20221026
  Serious: No
  Sender: FDA-Public Use
  Company Number: US-ORGANON-O2207USA001420

PATIENT
  Age: 14 Year
  Sex: Male

DRUGS (7)
  1. ELOCON [Suspect]
     Active Substance: MOMETASONE FUROATE
     Indication: Dermatitis atopic
     Dosage: UNK
     Route: 061
  2. PARAFFIN [Suspect]
     Active Substance: PARAFFIN
     Indication: Dermatitis atopic
     Dosage: DAILY
  3. PIMECROLIMUS [Suspect]
     Active Substance: PIMECROLIMUS
     Indication: Dermatitis atopic
     Dosage: UNK
  4. MUPIROCIN [Suspect]
     Active Substance: MUPIROCIN
     Indication: Dermatitis atopic
     Dosage: UNK
  5. BUDESONIDE [Suspect]
     Active Substance: BUDESONIDE
     Indication: Eosinophilic oesophagitis
     Dosage: 2 MG DAILY
     Route: 048
  6. OMEPRAZOLE [Suspect]
     Active Substance: OMEPRAZOLE
     Indication: Eosinophilic oesophagitis
     Dosage: 20 MG DAILY
     Route: 048
  7. DUPILUMAB [Suspect]
     Active Substance: DUPILUMAB
     Indication: Dermatitis atopic
     Dosage: 600 MG FOLLOWED BY 300 MG EVERY 2 WEEKS

REACTIONS (1)
  - Therapeutic product effect incomplete [Unknown]
